FAERS Safety Report 18160316 (Version 6)
Quarter: 2020Q4

REPORT INFORMATION
  Report Type: Spontaneous
  Country: PL (occurrence: PL)
  Receive Date: 20200818
  Receipt Date: 20201214
  Transmission Date: 20210113
  Serious: Yes (Hospitalization, Other)
  Sender: FDA-Public Use
  Company Number: PL-AUROBINDO-AUR-APL-2020-039465

PATIENT
  Age: 56 Year
  Sex: Female

DRUGS (12)
  1. PARACETAMOL [Interacting]
     Active Substance: ACETAMINOPHEN
     Indication: SPINAL PAIN
  2. AMIODARONE [Suspect]
     Active Substance: AMIODARONE
     Indication: ATRIAL FIBRILLATION
     Dosage: 200 MILLIGRAM, ONCE A DAY
     Route: 048
  3. NORFLOXACIN [Interacting]
     Active Substance: NORFLOXACIN
     Indication: ESCHERICHIA URINARY TRACT INFECTION
  4. AGOMELATINE [Interacting]
     Active Substance: AGOMELATINE
     Indication: DEPRESSION
     Dosage: 50 MILLIGRAM, ONCE A DAY
     Route: 065
  5. NORFLOXACIN [Interacting]
     Active Substance: NORFLOXACIN
     Indication: ESCHERICHIA URINARY TRACT INFECTION
     Dosage: 400 MILLIGRAM, TWO TIMES A DAY (800 MILLIGRAM, ONCE A DAY)
     Route: 048
  6. PARACETAMOL [Suspect]
     Active Substance: ACETAMINOPHEN
     Indication: BACK PAIN
     Dosage: 4 GRAM, DAILY
     Route: 048
  7. NORFLOXACIN [Interacting]
     Active Substance: NORFLOXACIN
     Indication: CYSTITIS
  8. WARFARIN [Interacting]
     Active Substance: WARFARIN
     Dosage: ADJUSTED TO THE INTERNATIONAL NORMALIZED RATIO (INR)
     Route: 065
  9. CYCLONAMINE [Suspect]
     Active Substance: ETHAMSYLATE
     Indication: GENITAL HAEMORRHAGE
     Dosage: UNK
     Route: 065
  10. NORFLOXACIN [Interacting]
     Active Substance: NORFLOXACIN
     Indication: URINARY TRACT INFECTION
  11. PARACETAMOL [Interacting]
     Active Substance: ACETAMINOPHEN
     Indication: ANALGESIC THERAPY
     Dosage: 1 GRAM, FOUR TIMES/DAY
     Route: 048
  12. WARFARIN [Interacting]
     Active Substance: WARFARIN
     Indication: ATRIAL FIBRILLATION
     Dosage: 200 MILLIGRAM, ONCE A DAY
     Route: 065

REACTIONS (19)
  - Back pain [Unknown]
  - International normalised ratio increased [Unknown]
  - Contraindicated product administered [Recovered/Resolved]
  - Genital haemorrhage [Unknown]
  - Drug interaction [Unknown]
  - Fatigue [Unknown]
  - Vaginal haemorrhage [Unknown]
  - Drug ineffective [Unknown]
  - Escherichia urinary tract infection [Unknown]
  - Haemorrhagic diathesis [Unknown]
  - Anticoagulation drug level increased [Unknown]
  - Labelled drug-drug interaction medication error [Unknown]
  - Spinal pain [Unknown]
  - Genital discharge [Unknown]
  - Depression [Unknown]
  - Haemorrhage [Unknown]
  - Inhibitory drug interaction [Unknown]
  - Drug level increased [Unknown]
  - Inadequate analgesia [Unknown]

NARRATIVE: CASE EVENT DATE: 2020
